FAERS Safety Report 15318333 (Version 1)
Quarter: 2018Q3

REPORT INFORMATION
  Report Type: Spontaneous
  Country: US (occurrence: US)
  Receive Date: 20180817
  Receipt Date: 20180817
  Transmission Date: 20181010
  Serious: Yes (Life-Threatening, Hospitalization, Disabling, Other)
  Sender: FDA-Public Use
  Company Number: None

PATIENT
  Age: 61 Year
  Sex: Male
  Weight: 60.3 kg

DRUGS (6)
  1. CLOZARIL [Suspect]
     Active Substance: CLOZAPINE
     Indication: DEMENTIA
     Route: 048
  2. CLOZAPINE. [Concomitant]
     Active Substance: CLOZAPINE
  3. MELATONIN [Concomitant]
     Active Substance: MELATONIN
  4. LEXAPRO [Concomitant]
     Active Substance: ESCITALOPRAM OXALATE
  5. VITAMIN D [Concomitant]
     Active Substance: CHOLECALCIFEROL
  6. NEDEXTUA [Concomitant]

REACTIONS (5)
  - Respiratory tract infection [None]
  - Dysarthria [None]
  - Weight decreased [None]
  - Confusional state [None]
  - Hypersomnia [None]

NARRATIVE: CASE EVENT DATE: 20180728
